FAERS Safety Report 15777880 (Version 1)
Quarter: 2018Q4

REPORT INFORMATION
  Report Type: Spontaneous
  Country: US (occurrence: US)
  Receive Date: 20181231
  Receipt Date: 20181231
  Transmission Date: 20190205
  Serious: Yes (Hospitalization)
  Sender: FDA-Public Use
  Company Number: None

PATIENT
  Age: 75 Year
  Sex: Male
  Weight: 92.25 kg

DRUGS (7)
  1. LOSARTIN [Concomitant]
     Active Substance: LOSARTAN
  2. VALSARTAN. [Suspect]
     Active Substance: VALSARTAN
  3. TERAZOSIN [Concomitant]
     Active Substance: TERAZOSIN\TERAZOSIN HYDROCHLORIDE
  4. ELLIPTA [Concomitant]
  5. VALSARTAN 160 [Suspect]
     Active Substance: VALSARTAN
     Indication: BLOOD PRESSURE ABNORMAL
     Dosage: ?          QUANTITY:1 TABLET(S);?
     Route: 048
  6. ATORVASTATIN [Concomitant]
     Active Substance: ATORVASTATIN
  7. VITAMIN D [Concomitant]
     Active Substance: CHOLECALCIFEROL

REACTIONS (2)
  - Recalled product administered [None]
  - Sarcoma [None]

NARRATIVE: CASE EVENT DATE: 20180720
